FAERS Safety Report 4499903-1 (Version None)
Quarter: 2004Q4

REPORT INFORMATION
  Report Type: 
  Country: None (occurrence: None)
  Receive Date: 20041112
  Receipt Date: 20041102
  Transmission Date: 20050328
  Serious: Yes (Other)
  Sender: FDA-Public Use
  Company Number: CA-AMGEN-US097858

PATIENT
  Sex: Female

DRUGS (7)
  1. ENBREL [Suspect]
     Indication: RHEUMATOID ARTHRITIS
     Route: 058
     Dates: start: 20030901
  2. METHOTREXATE [Concomitant]
     Dates: start: 20020201
  3. EFFEXOR [Concomitant]
  4. RIVOTRIL [Concomitant]
  5. FOLIC ACID [Concomitant]
  6. ACETAMINOPHEN [Concomitant]
  7. PROCHLORPERAZINE [Concomitant]

REACTIONS (2)
  - BLOOD IMMUNOGLOBULIN G INCREASED [None]
  - OSTEOLYSIS [None]
